FAERS Safety Report 4948742-3 (Version None)
Quarter: 2006Q1

REPORT INFORMATION
  Report Type: 
  Country: None (occurrence: None)
  Receive Date: 20060317
  Receipt Date: 20060303
  Transmission Date: 20060701
  Serious: Yes (Other)
  Sender: FDA-Public Use
  Company Number: 2006032897

PATIENT
  Sex: Female

DRUGS (13)
  1. NEURONTIN [Suspect]
     Indication: DIABETIC NEUROPATHY
     Dosage: (600 MG)
  2. LYRICA [Suspect]
     Indication: DIABETIC NEUROPATHY
     Dosage: 150 MG (75 MG, 2 IN 1 D)
     Dates: start: 20060101
  3. MOTRIN [Suspect]
     Indication: ARTHRITIS
  4. ADVIL [Suspect]
     Indication: ARTHRITIS
  5. NORVASC [Concomitant]
  6. AMARYL [Concomitant]
  7. GLUCOPHAGE [Concomitant]
  8. VALSARTAN [Concomitant]
  9. INDERAL [Concomitant]
  10. FUROSEMIDE [Concomitant]
  11. LIPITOR [Concomitant]
  12. KLONOPIN [Concomitant]
  13. ASPIRIN [Concomitant]

REACTIONS (3)
  - CATARACT [None]
  - DRUG INTOLERANCE [None]
  - PAIN IN EXTREMITY [None]
